FAERS Safety Report 10229201 (Version 4)
Quarter: 2015Q3

REPORT INFORMATION
  Report Type: Report from Study
  Country: JP (occurrence: JP)
  Receive Date: 20140611
  Receipt Date: 20150811
  Transmission Date: 20151125
  Serious: Yes (Other)
  Sender: FDA-Public Use
  Company Number: JP-AMGEN-JPNCT2014042668

PATIENT
  Age: 72 Year
  Sex: Male
  Weight: 70 kg

DRUGS (11)
  1. CASODEX [Concomitant]
     Active Substance: BICALUTAMIDE
     Dosage: UNK
     Route: 065
     Dates: start: 20130717, end: 20141201
  2. ODYNE [Concomitant]
     Active Substance: FLUTAMIDE
     Dosage: UNK
     Route: 065
     Dates: start: 20141201, end: 20150104
  3. PROSEXOL [Concomitant]
     Active Substance: ETHINYL ESTRADIOL
     Dosage: UNK
     Route: 065
     Dates: start: 20150106
  4. SELBEX [Concomitant]
     Active Substance: TEPRENONE
     Dosage: 150 MG, QD
     Route: 048
     Dates: start: 20120409, end: 201301
  5. UBRETID [Concomitant]
     Active Substance: DISTIGMINE BROMIDE
     Dosage: 5 MG, QD
     Route: 048
     Dates: start: 20141105, end: 20150109
  6. DENOTAS [Concomitant]
     Active Substance: CALCIUM CARBONATE\CHOLECALCIFEROL\MAGNESIUM CARBONATE
     Dosage: 2 DF, QD
     Route: 048
     Dates: start: 20130717, end: 20140413
  7. ZOLADEX [Concomitant]
     Active Substance: GOSERELIN ACETATE
     Dosage: UNK
     Route: 065
     Dates: start: 20120220
  8. DENOSUMAB [Suspect]
     Active Substance: DENOSUMAB
     Indication: METASTASES TO BONE
     Dosage: 120 MG, UNK
     Route: 058
     Dates: start: 20130422, end: 20140317
  9. LOBU [Concomitant]
     Active Substance: LOBUCAVIR
     Dosage: 180 MG, QD
     Route: 048
     Dates: start: 20120409, end: 201301
  10. DESMOPRESSIN ACETATE. [Concomitant]
     Active Substance: DESMOPRESSIN ACETATE
     Dosage: UNK
     Route: 065
     Dates: start: 20141105, end: 20150104
  11. URIEF [Concomitant]
     Active Substance: SILODOSIN
     Dosage: 4 MG, QD
     Route: 048
     Dates: start: 20141105, end: 20150109

REACTIONS (7)
  - Thrombosis [Not Recovered/Not Resolved]
  - Nausea [Not Recovered/Not Resolved]
  - Gastric ulcer [Not Recovered/Not Resolved]
  - Osteonecrosis of jaw [Recovering/Resolving]
  - Cancer pain [Not Recovered/Not Resolved]
  - Osteomyelitis [Recovering/Resolving]
  - Constipation [Not Recovered/Not Resolved]

NARRATIVE: CASE EVENT DATE: 20140317
